FAERS Safety Report 4381992-6 (Version None)
Quarter: 2004Q2

REPORT INFORMATION
  Report Type: 
  Country: None (occurrence: None)
  Receive Date: 20040615
  Receipt Date: 20040527
  Transmission Date: 20050107
  Serious: Yes (Death, Hospitalization)
  Sender: FDA-Public Use
  Company Number: ATO-04-0527

PATIENT
  Age: 65 Year

DRUGS (1)
  1. TRISENOX [Suspect]
     Indication: MULTIPLE MYELOMA

REACTIONS (5)
  - DEHYDRATION [None]
  - DRUG INEFFECTIVE [None]
  - LUNG INFECTION [None]
  - PULMONARY EMBOLISM [None]
  - SUDDEN DEATH [None]
